FAERS Safety Report 4927352-8 (Version None)
Quarter: 2006Q1

REPORT INFORMATION
  Report Type: 
  Country: None (occurrence: None)
  Receive Date: 20060228
  Receipt Date: 20050909
  Transmission Date: 20060701
  Serious: No
  Sender: FDA-Public Use
  Company Number: US-GLAXOSMITHKLINE-A0573597A

PATIENT
  Age: 57 Year
  Sex: Female

DRUGS (2)
  1. IMITREX [Suspect]
     Indication: MIGRAINE
     Dosage: 6MG PER DAY
     Route: 030
     Dates: start: 20050909, end: 20050909
  2. ZOCOR [Concomitant]

REACTIONS (1)
  - INCORRECT ROUTE OF DRUG ADMINISTRATION [None]
